FAERS Safety Report 7601897-4 (Version None)
Quarter: 2011Q3

REPORT INFORMATION
  Report Type: 
  Country: None (occurrence: None)
  Receive Date: 20110711
  Receipt Date: 20110704
  Transmission Date: 20111222
  Serious: Yes (Hospitalization)
  Sender: FDA-Public Use
  Company Number: JP-ABBOTT-11P-087-0835105-00

PATIENT
  Age: 39 Year
  Sex: Female

DRUGS (7)
  1. CLARITHROMYCIN [Suspect]
     Indication: PHARYNGITIS
     Route: 048
     Dates: start: 20110609
  2. TRANSAMIN [Concomitant]
     Indication: PRODUCT USED FOR UNKNOWN INDICATION
  3. MUCODYNE [Concomitant]
     Indication: PRODUCT USED FOR UNKNOWN INDICATION
  4. LOXONIN [Concomitant]
     Indication: PRODUCT USED FOR UNKNOWN INDICATION
  5. REBAMIPIDE [Concomitant]
     Indication: PRODUCT USED FOR UNKNOWN INDICATION
  6. COORDINAX [Suspect]
     Indication: NASOPHARYNGITIS
     Dosage: 400MG SID
     Route: 048
     Dates: start: 20110607, end: 20110608
  7. AMOXICILLIN [Concomitant]
     Indication: PRODUCT USED FOR UNKNOWN INDICATION

REACTIONS (1)
  - TOXIC SKIN ERUPTION [None]
